FAERS Safety Report 11331503 (Version 4)
Quarter: 2015Q3

REPORT INFORMATION
  Report Type: Spontaneous
  Country: US (occurrence: US)
  Receive Date: 20150803
  Receipt Date: 20150930
  Transmission Date: 20151125
  Serious: Yes (Hospitalization, Other)
  Sender: FDA-Public Use
  Company Number: US-PFIZER INC-2015251342

PATIENT
  Age: 29 Year
  Sex: Female
  Weight: 95 kg

DRUGS (9)
  1. DEXEDRINE [Concomitant]
     Active Substance: DEXTROAMPHETAMINE SULFATE
     Dosage: UNK
  2. GABAPENTIN. [Suspect]
     Active Substance: GABAPENTIN
     Dosage: 100 MG, 1X/DAY
     Dates: start: 201501, end: 201502
  3. MELOXICAM. [Concomitant]
     Active Substance: MELOXICAM
     Indication: CENTRAL PAIN SYNDROME
     Dosage: 15 MG, 1X/DAY
     Dates: end: 201501
  4. PIRMELLA [Concomitant]
     Indication: HORMONE THERAPY
     Dosage: 1/35, 1X/DAY
     Dates: start: 200412
  5. GABAPENTIN. [Suspect]
     Active Substance: GABAPENTIN
     Indication: CENTRAL PAIN SYNDROME
     Dosage: 300 MG, 2X/DAY
     Route: 048
     Dates: start: 20131227, end: 201501
  6. VITAFUSION VITAMINS [Concomitant]
     Dosage: UNK
  7. NECOM [Concomitant]
     Indication: CONTRACEPTION
  8. GABAPENTIN. [Suspect]
     Active Substance: GABAPENTIN
     Indication: PAIN
     Dosage: 200 MG, 2X/DAY
     Dates: start: 201501, end: 201501
  9. MELOXICAM. [Concomitant]
     Active Substance: MELOXICAM
     Dosage: 15 MG, 2X/DAY
     Dates: start: 20131021, end: 20150121

REACTIONS (5)
  - Hypersensitivity [Not Recovered/Not Resolved]
  - Drug withdrawal syndrome [Not Recovered/Not Resolved]
  - Urticaria [Recovered/Resolved]
  - Feeling abnormal [Not Recovered/Not Resolved]
  - Product use issue [Recovered/Resolved]

NARRATIVE: CASE EVENT DATE: 20131227
